FAERS Safety Report 12522072 (Version 1)
Quarter: 2016Q3

REPORT INFORMATION
  Report Type: Report from Study
  Country: JP (occurrence: JP)
  Receive Date: 20160701
  Receipt Date: 20160701
  Transmission Date: 20161109
  Serious: Yes (Life-Threatening, Other)
  Sender: FDA-Public Use
  Company Number: JP-BRISTOL-MYERS SQUIBB COMPANY-BMS-2016-052742

PATIENT
  Age: 69 Year
  Sex: Male
  Weight: 52 kg

DRUGS (13)
  1. APIXABAN [Suspect]
     Active Substance: APIXABAN
     Indication: CEREBROVASCULAR ACCIDENT PROPHYLAXIS
     Dosage: 5 MG, BID
     Route: 048
     Dates: start: 20140228, end: 20160211
  2. CODEINE PHOSPHATE [Concomitant]
     Active Substance: CODEINE PHOSPHATE
     Indication: INTERSTITIAL LUNG DISEASE
     Dosage: 60 MG,  PER DAY
     Route: 048
     Dates: start: 20151219
  3. CODEINE PHOSPHATE [Concomitant]
     Active Substance: CODEINE PHOSPHATE
     Indication: IDIOPATHIC PULMONARY FIBROSIS
  4. MEVALOTIN [Concomitant]
     Active Substance: PRAVASTATIN SODIUM
     Indication: DYSLIPIDAEMIA
     Dosage: 10 MG PER DAY
     Route: 048
  5. PREDONINE [Concomitant]
     Active Substance: PREDNISOLONE\PREDNISOLONE ACETATE\PREDNISOLONE SODIUM SUCCINATE
     Indication: INTERSTITIAL LUNG DISEASE
     Dosage: 5 MG,  PER DAY
     Route: 048
     Dates: start: 20160118
  6. HALFDIGOXIN [Concomitant]
     Active Substance: DIGOXIN
     Indication: CARDIAC FAILURE
     Dosage: 0.125 MG PER DAY
     Route: 048
  7. PARIET [Concomitant]
     Active Substance: RABEPRAZOLE SODIUM
     Indication: PROPHYLAXIS
     Dosage: 10 MG PER DAY
     Route: 048
  8. STARSIS [Concomitant]
     Active Substance: NATEGLINIDE
     Indication: DIABETES MELLITUS
     Dosage: 270 MG PER DAY
     Route: 048
     Dates: start: 20151019
  9. MAGMITT [Concomitant]
     Active Substance: MAGNESIUM OXIDE
     Indication: CONSTIPATION
     Dosage: 660 MG,  PER DAY
     Route: 048
     Dates: start: 20160118, end: 20160216
  10. APIXABAN [Suspect]
     Active Substance: APIXABAN
     Dosage: 5 MG, BID
     Route: 048
     Dates: start: 20160212, end: 20160221
  11. PREDONINE [Concomitant]
     Active Substance: PREDNISOLONE\PREDNISOLONE ACETATE\PREDNISOLONE SODIUM SUCCINATE
     Indication: IDIOPATHIC PULMONARY FIBROSIS
  12. MEDICON                            /00048102/ [Concomitant]
     Active Substance: DEXTROMETHORPHAN HYDROBROMIDE
     Indication: INTERSTITIAL LUNG DISEASE
     Dosage: 60 MG PER DAY
     Route: 048
     Dates: start: 20150627
  13. MAGMITT [Concomitant]
     Active Substance: MAGNESIUM OXIDE
     Dosage: 990 MG,  PER DAY
     Route: 048
     Dates: start: 20160217

REACTIONS (3)
  - Surgery [Unknown]
  - Catheter placement [Unknown]
  - Pneumothorax [Recovered/Resolved]

NARRATIVE: CASE EVENT DATE: 20160202
